FAERS Safety Report 14565210 (Version 5)
Quarter: 2018Q4

REPORT INFORMATION
  Report Type: Report from Study
  Country: GB (occurrence: GB)
  Receive Date: 20180223
  Receipt Date: 20181227
  Transmission Date: 20190204
  Serious: Yes (Death, Other)
  Sender: FDA-Public Use
  Company Number: GB-AUROBINDO-AUR-APL-2018-009205

PATIENT
  Age: 45 Year
  Sex: Female

DRUGS (12)
  1. MORPHINE [Suspect]
     Active Substance: MORPHINE
     Dosage: 90 MG, BID INITIALLY (REDUCING DOSE OF SLOW RELEASE ORAL MORPHINE)
     Route: 048
  2. TRAMADOL. [Suspect]
     Active Substance: TRAMADOL
     Indication: PRODUCT USED FOR UNKNOWN INDICATION
     Dosage: UNK
     Route: 065
  3. PREGABALIN. [Suspect]
     Active Substance: PREGABALIN
     Indication: PRODUCT USED FOR UNKNOWN INDICATION
     Dosage: UNK
     Route: 065
     Dates: start: 20150303
  4. ORAMORPH [Suspect]
     Active Substance: MORPHINE SULFATE
     Dosage: 10 MG/5MLS AS REQUIRED BASIS EVERY 4 HOURS, FURTHER 100 ML
     Dates: start: 20150629
  5. ZOMORPH [Suspect]
     Active Substance: MORPHINE SULFATE
     Indication: PRODUCT USED FOR UNKNOWN INDICATION
     Route: 065
  6. MIRTAZAPINE. [Suspect]
     Active Substance: MIRTAZAPINE
     Indication: PRODUCT USED FOR UNKNOWN INDICATION
     Dosage: UNK ()
     Route: 065
     Dates: start: 20150303
  7. MORPHINE [Suspect]
     Active Substance: MORPHINE
     Dosage: 90 MG, BID
     Route: 048
  8. MORPHINE [Suspect]
     Active Substance: MORPHINE
     Indication: PRODUCT USED FOR UNKNOWN INDICATION
     Dosage: ESCALATING DOSE OF ORAL MORPHINE 100ML, FOLLOWED BY 280ML AND 500ML ()
     Route: 048
  9. ORAMORPH [Suspect]
     Active Substance: MORPHINE SULFATE
     Indication: PRODUCT USED FOR UNKNOWN INDICATION
     Dosage: 10 MG/5MLS AS REQUIRED BASIS EVERY 4 HOURS, FURTHER 280 ML (1)
     Dates: start: 20150703
  10. ORAMORPH [Suspect]
     Active Substance: MORPHINE SULFATE
     Dosage: 10 MG/5MLS AS REQUIRED BASIS EVERY 4 HOURS, 500 ML (1)
     Dates: start: 20150605
  11. ORAMORPH [Suspect]
     Active Substance: MORPHINE SULFATE
     Dosage: 1 DF,Q4H
     Route: 065
     Dates: start: 20150320
  12. ORAMORPH [Suspect]
     Active Substance: MORPHINE SULFATE
     Dosage: 10 MG/5MLS AS REQUIRED BASIS EVERY 4 HOURS, FURTHER 500 ML: AVERAGE 7 DOSES DAILY (1)
     Dates: start: 20150619

REACTIONS (5)
  - Pain [Fatal]
  - Medication error [Fatal]
  - Adverse drug reaction [Fatal]
  - Death [Fatal]
  - Toxicity to various agents [Fatal]

NARRATIVE: CASE EVENT DATE: 20150320
